FAERS Safety Report 4848843-4 (Version None)
Quarter: 2005Q4

REPORT INFORMATION
  Report Type: 
  Country: None (occurrence: None)
  Receive Date: 20051115
  Receipt Date: 20050804
  Transmission Date: 20060501
  Serious: Yes (Other)
  Sender: FDA-Public Use
  Company Number: 394484

PATIENT
  Age: 35 Year
  Sex: Female

DRUGS (2)
  1. PEGASYS [Suspect]
     Indication: HEPATITIS C
     Dosage: 135 MCG 1 PER WEEK, SUBCUTANEOUS
     Route: 058
     Dates: start: 20041231
  2. COPEGUS [Suspect]
     Indication: HEPATITIS C
     Dosage: 6 DOSE FORM DAILY, ORAL
     Route: 048
     Dates: start: 20041231

REACTIONS (16)
  - ALOPECIA [None]
  - ANAEMIA [None]
  - DIARRHOEA [None]
  - DISTURBANCE IN ATTENTION [None]
  - DRY SKIN [None]
  - FATIGUE [None]
  - HAEMOGLOBIN DECREASED [None]
  - HEADACHE [None]
  - IMPATIENCE [None]
  - MEMORY IMPAIRMENT [None]
  - MOOD ALTERED [None]
  - NASOPHARYNGITIS [None]
  - NAUSEA [None]
  - NEUTROPENIA [None]
  - RASH [None]
  - WHITE BLOOD CELL COUNT DECREASED [None]
